FAERS Safety Report 8200501-4 (Version None)
Quarter: 2012Q1

REPORT INFORMATION
  Report Type: 
  Country: None (occurrence: None)
  Receive Date: 20120307
  Receipt Date: 20120222
  Transmission Date: 20120608
  Serious: Yes (Hospitalization, Other)
  Sender: FDA-Public Use
  Company Number: IMP_05758_2012

PATIENT
  Age: 82 Year
  Sex: Female

DRUGS (2)
  1. METFORMIN HCL [Suspect]
     Indication: TYPE 2 DIABETES MELLITUS
     Dosage: 850 MG QD)
  2. COUMADIN [Concomitant]

REACTIONS (12)
  - NAUSEA [None]
  - HYPERLACTACIDAEMIA [None]
  - VOMITING [None]
  - RESPIRATORY DISTRESS [None]
  - DEHYDRATION [None]
  - CIRCULATORY COLLAPSE [None]
  - BLOOD GLUCOSE INCREASED [None]
  - DIARRHOEA [None]
  - BLOOD PRESSURE DECREASED [None]
  - LACTIC ACIDOSIS [None]
  - MENTAL STATUS CHANGES [None]
  - METABOLIC ACIDOSIS [None]
